FAERS Safety Report 4567226-8 (Version None)
Quarter: 2005Q1

REPORT INFORMATION
  Report Type: 
  Country: None (occurrence: None)
  Receive Date: 20050201
  Receipt Date: 20050103
  Transmission Date: 20050727
  Serious: Yes (Other)
  Sender: FDA-Public Use
  Company Number: US-SANOFISYNTHELABO-D01200500030

PATIENT
  Sex: Male
  Weight: 77.7 kg

DRUGS (6)
  1. DEXAMETHASONE [Concomitant]
     Dosage: UNK
     Route: 065
     Dates: start: 20041229, end: 20041230
  2. KYTRIL [Concomitant]
     Dosage: UNK
     Route: 065
     Dates: start: 20041229, end: 20041230
  3. DIOVAN [Concomitant]
     Dosage: UNK
     Route: 065
     Dates: start: 20041228
  4. IDARUBICIN HCL [Concomitant]
     Indication: CHEMOTHERAPY
     Dosage: UNK
     Route: 065
     Dates: start: 20041229, end: 20041230
  5. CYTARABINE [Concomitant]
     Indication: CHEMOTHERAPY
     Dosage: UNK
     Route: 065
     Dates: start: 20041229, end: 20041230
  6. RASBURICASE [Suspect]
     Indication: HYPERURICAEMIA
     Route: 042
     Dates: start: 20041229, end: 20041230

REACTIONS (6)
  - HAEMATOCRIT DECREASED [None]
  - HAEMOGLOBIN DECREASED [None]
  - HAEMOLYSIS [None]
  - HYPERBILIRUBINAEMIA [None]
  - PACKED RED BLOOD CELL TRANSFUSION [None]
  - PLATELET COUNT DECREASED [None]
